FAERS Safety Report 7635643-5 (Version None)
Quarter: 2011Q3

REPORT INFORMATION
  Report Type: 
  Country: None (occurrence: None)
  Receive Date: 20110726
  Receipt Date: 20110719
  Transmission Date: 20111222
  Serious: Yes (Hospitalization)
  Sender: FDA-Public Use
  Company Number: PHHO2011US12430

PATIENT
  Sex: Female
  Weight: 58 kg

DRUGS (18)
  1. BLINDED NO TREATMENT RECEIVED [Suspect]
     Indication: DEMENTIA ALZHEIMER'S TYPE
     Dosage: UNK
     Route: 062
     Dates: start: 20110426, end: 20110717
  2. PRILOSEC [Concomitant]
     Indication: GASTROOESOPHAGEAL REFLUX DISEASE
  3. EXCEDRIN (MIGRAINE) [Concomitant]
     Indication: ARTHRITIS
  4. SEROQUEL [Concomitant]
     Indication: HALLUCINATION
  5. CRESTOR [Concomitant]
     Indication: BLOOD CHOLESTEROL INCREASED
  6. CIPROFLOXACIN HCL [Concomitant]
     Indication: URINARY TRACT INFECTION
  7. EXELON [Suspect]
     Indication: DEMENTIA ALZHEIMER'S TYPE
     Dosage: UNK
     Route: 062
     Dates: start: 20110426, end: 20110717
  8. EXELON [Suspect]
     Indication: DEMENTIA ALZHEIMER'S TYPE
     Route: 062
  9. FELODIPINE [Concomitant]
     Indication: HYPERTENSION
  10. SERTRALINE HYDROCHLORIDE [Concomitant]
     Indication: DEPRESSION
  11. RISPERDAL [Concomitant]
     Indication: HALLUCINATION
  12. NEXIUM [Concomitant]
     Indication: GASTROOESOPHAGEAL REFLUX DISEASE
  13. DULCOLAX [Concomitant]
     Indication: CONSTIPATION
  14. SENNA [Concomitant]
     Indication: CONSTIPATION
  15. SODIUM DIBUNATE [Concomitant]
  16. ZETIA [Concomitant]
     Indication: BLOOD CHOLESTEROL INCREASED
  17. CALCIUM ACETATE [Concomitant]
  18. VITAMIN D [Concomitant]

REACTIONS (3)
  - ABDOMINAL PAIN UPPER [None]
  - NAUSEA [None]
  - POLLAKIURIA [None]
